FAERS Safety Report 13330095 (Version 1)
Quarter: 2017Q1

REPORT INFORMATION
  Report Type: Spontaneous
  Country: US (occurrence: US)
  Receive Date: 20170313
  Receipt Date: 20170313
  Transmission Date: 20170428
  Serious: Yes (Life-Threatening, Hospitalization)
  Sender: FDA-Public Use
  Company Number: US-IPCA LABORATORIES LIMITED-IPC201703-000206

PATIENT
  Age: 58 Year
  Sex: Male

DRUGS (3)
  1. WARFARIN [Suspect]
     Active Substance: WARFARIN
  2. ENOXAPARIN [Concomitant]
     Active Substance: ENOXAPARIN
     Route: 058
  3. ENOXAPARIN [Concomitant]
     Active Substance: ENOXAPARIN
     Route: 058

REACTIONS (8)
  - Haemothorax [Recovered/Resolved]
  - Coagulation factor VII level decreased [Recovered/Resolved]
  - Peritoneal haemorrhage [Recovered/Resolved]
  - Thrombosis [Unknown]
  - Hepatic function abnormal [Recovered/Resolved]
  - Condition aggravated [Recovered/Resolved]
  - Ecchymosis [Recovered/Resolved]
  - International normalised ratio increased [Unknown]
